FAERS Safety Report 12968620 (Version 1)
Quarter: 2016Q4

REPORT INFORMATION
  Report Type: Spontaneous
  Country: US (occurrence: US)
  Receive Date: 20161121
  Receipt Date: 20161121
  Transmission Date: 20170207
  Serious: Yes (Other)
  Sender: FDA-Public Use
  Company Number: None

PATIENT
  Age: 0 Day
  Sex: Male
  Weight: 35.4 kg

DRUGS (1)
  1. LEVETRACETAM 100MG/ML [Suspect]
     Active Substance: LEVETIRACETAM
     Indication: EPILEPSY
     Dosage: GT
     Dates: start: 20090401, end: 20130221

REACTIONS (3)
  - Product substitution issue [None]
  - Seizure [None]
  - Condition aggravated [None]

NARRATIVE: CASE EVENT DATE: 20130221
